FAERS Safety Report 11755546 (Version 1)
Quarter: 2015Q4

REPORT INFORMATION
  Report Type: Spontaneous
  Country: US (occurrence: None)
  Receive Date: 20151118
  Receipt Date: 20151118
  Transmission Date: 20160304
  Serious: Yes (Other)
  Sender: FDA-Public Use
  Company Number: None

PATIENT
  Age: 47 Year
  Sex: Female
  Weight: 65.32 kg

DRUGS (3)
  1. CIPRO [Suspect]
     Active Substance: CIPROFLOXACIN HYDROCHLORIDE
     Indication: BACTERIAL INFECTION
     Dosage: 1 TABLET EVERY 12 HOURS TWICE DAILY
     Route: 048
     Dates: start: 20151112, end: 20151114
  2. FIBER [Concomitant]
     Active Substance: PSYLLIUM HUSK
  3. OCELLA BIRTH CONTROL [Concomitant]

REACTIONS (3)
  - Feeling hot [None]
  - Chest discomfort [None]
  - Psychotic disorder [None]

NARRATIVE: CASE EVENT DATE: 20151107
